FAERS Safety Report 6470097-6 (Version None)
Quarter: 2009Q4

REPORT INFORMATION
  Report Type: 
  Country: None (occurrence: None)
  Receive Date: 20091203
  Receipt Date: 20091130
  Transmission Date: 20100525
  Serious: Yes (Death, Hospitalization, Other)
  Sender: FDA-Public Use
  Company Number: NZ-ROCHE-671808

PATIENT
  Age: 47 Year
  Sex: Male

DRUGS (4)
  1. MYCOPHENOLATE MOFETIL [Suspect]
     Route: 065
  2. PREDNISOLONE [Suspect]
     Route: 065
  3. CYCLOSPORINE [Suspect]
     Route: 065
  4. ACYCLOVIR [Suspect]
     Indication: HERPES SIMPLEX
     Route: 042

REACTIONS (6)
  - ESCHERICHIA INFECTION [None]
  - GRAFT DYSFUNCTION [None]
  - HUMAN HERPESVIRUS 6 INFECTION [None]
  - PANCYTOPENIA [None]
  - RENAL IMPAIRMENT [None]
  - RENAL TUBULAR NECROSIS [None]
